FAERS Safety Report 11750613 (Version 1)
Quarter: 2015Q4

REPORT INFORMATION
  Report Type: Spontaneous
  Country: US (occurrence: None)
  Receive Date: 20151117
  Receipt Date: 20151117
  Transmission Date: 20160304
  Serious: Yes (Disabling)
  Sender: FDA-Public Use
  Company Number: None

PATIENT
  Age: 82 Year
  Sex: Female
  Weight: 60.78 kg

DRUGS (8)
  1. SIMVASTATIN. [Concomitant]
     Active Substance: SIMVASTATIN
  2. SYNTHROID [Concomitant]
     Active Substance: LEVOTHYROXINE SODIUM
  3. XOLAIR [Suspect]
     Active Substance: OMALIZUMAB
     Route: 058
     Dates: start: 20150227, end: 20151009
  4. MOBIC [Concomitant]
     Active Substance: MELOXICAM
  5. TOPROL XL [Concomitant]
     Active Substance: METOPROLOL SUCCINATE
  6. NORVASC [Concomitant]
     Active Substance: AMLODIPINE BESYLATE
  7. ACULAR [Concomitant]
     Active Substance: KETOROLAC TROMETHAMINE
  8. NEPTAZANE [Concomitant]
     Active Substance: METHAZOLAMIDE

REACTIONS (7)
  - Pain in extremity [None]
  - Injection site pain [None]
  - Muscular weakness [None]
  - Arthralgia [None]
  - Mobility decreased [None]
  - Musculoskeletal pain [None]
  - Myalgia [None]

NARRATIVE: CASE EVENT DATE: 20151009
